FAERS Safety Report 14785068 (Version 1)
Quarter: 2018Q2

REPORT INFORMATION
  Report Type: Spontaneous
  Country: EG (occurrence: EG)
  Receive Date: 20180420
  Receipt Date: 20180420
  Transmission Date: 20180711
  Serious: Yes (Death, Other)
  Sender: FDA-Public Use
  Company Number: EG-MYLANLABS-2018M1024368

PATIENT
  Sex: Female

DRUGS (4)
  1. MESNA. [Suspect]
     Active Substance: MESNA
     Indication: OVARIAN GERM CELL TUMOUR
     Dosage: FROM DAYS 1-5
     Route: 065
  2. VELBE [Suspect]
     Active Substance: VINBLASTINE SULFATE
     Indication: OVARIAN GERM CELL TUMOUR
     Dosage: 6 MG/M2 ON DAY 1
     Route: 042
  3. CISPLATIN. [Suspect]
     Active Substance: CISPLATIN
     Indication: OVARIAN GERM CELL TUMOUR
     Dosage: 20 MG/M2 FROM DAYS 1-5
     Route: 042
  4. IFOSFAMIDE. [Suspect]
     Active Substance: IFOSFAMIDE
     Indication: OVARIAN GERM CELL TUMOUR
     Dosage: IFOSFAMIDE 1500 MG/M2 FROM DAYS 1-5
     Route: 042

REACTIONS (1)
  - Renal impairment [Fatal]
